FAERS Safety Report 6950055-5 (Version None)
Quarter: 2010Q3

REPORT INFORMATION
  Report Type: 
  Country: None (occurrence: None)
  Receive Date: 20100828
  Receipt Date: 20100125
  Transmission Date: 20110219
  Serious: No
  Sender: FDA-Public Use
  Company Number: US-ABBOTT-10P-163-0622683-00

PATIENT
  Sex: Female
  Weight: 71.732 kg

DRUGS (5)
  1. NIASPAN [Suspect]
     Indication: BLOOD TRIGLYCERIDES INCREASED
     Route: 048
     Dates: start: 20091001
  2. NIASPAN [Suspect]
     Route: 048
     Dates: start: 20090901, end: 20091001
  3. ASPIRIN [Concomitant]
     Indication: PROPHYLAXIS
     Route: 048
  4. ASPIRIN [Concomitant]
     Indication: FLUSHING
  5. MULTI-VITAMIN [Concomitant]
     Indication: VITAMIN SUPPLEMENTATION
     Route: 048

REACTIONS (3)
  - ABDOMINAL DISCOMFORT [None]
  - FLUSHING [None]
  - HEADACHE [None]
